FAERS Safety Report 14541644 (Version 4)
Quarter: 2018Q3

REPORT INFORMATION
  Report Type: Spontaneous
  Country: US (occurrence: US)
  Receive Date: 20180216
  Receipt Date: 20180803
  Transmission Date: 20181010
  Serious: Yes (Hospitalization, Other)
  Sender: FDA-Public Use
  Company Number: US-BRISTOL-MYERS SQUIBB COMPANY-BMS-2018-012113

PATIENT
  Sex: Female

DRUGS (1)
  1. SPRYCEL [Suspect]
     Active Substance: DASATINIB
     Indication: PRODUCT USED FOR UNKNOWN INDICATION
     Dosage: 100 MG, QD
     Route: 048

REACTIONS (15)
  - Red blood cell count increased [Unknown]
  - Pain in extremity [Unknown]
  - Dyspnoea [Unknown]
  - Vision blurred [Unknown]
  - Protein urine present [Unknown]
  - Pain [Unknown]
  - Cardiac failure congestive [Unknown]
  - Pruritus [Unknown]
  - Eye discharge [Unknown]
  - Rash [Unknown]
  - Fatigue [Unknown]
  - Dizziness [Unknown]
  - Rhinorrhoea [Unknown]
  - Treatment noncompliance [Unknown]
  - Thyroid mass [Unknown]
